FAERS Safety Report 12387834 (Version 3)
Quarter: 2018Q1

REPORT INFORMATION
  Report Type: Spontaneous
  Country: US (occurrence: US)
  Receive Date: 20160520
  Receipt Date: 20180103
  Transmission Date: 20180508
  Serious: No
  Sender: FDA-Public Use
  Company Number: US-009507513-1605USA005276

PATIENT
  Sex: Female
  Weight: 70.3 kg

DRUGS (4)
  1. VCF (NONOXYNOL 9) [Concomitant]
  2. NAPROXEN. [Concomitant]
     Active Substance: NAPROXEN
     Dosage: UNK
  3. NUVARING [Suspect]
     Active Substance: ETHINYL ESTRADIOL\ETONOGESTREL
     Indication: CONTRACEPTION
     Dosage: 3 WEEKS IN, 1 WEEK OUT
     Route: 067
  4. ALAVERT ALLERGY [Concomitant]
     Active Substance: LORATADINE
     Indication: HYPERSENSITIVITY
     Dosage: UNK

REACTIONS (7)
  - Abdominal pain [Not Recovered/Not Resolved]
  - Inappropriate schedule of drug administration [Unknown]
  - Pain [Not Recovered/Not Resolved]
  - Metrorrhagia [Unknown]
  - Abnormal withdrawal bleeding [Unknown]
  - Adverse drug reaction [Not Recovered/Not Resolved]
  - Migraine [Unknown]
